FAERS Safety Report 7544328-5 (Version None)
Quarter: 2011Q2

REPORT INFORMATION
  Report Type: 
  Country: None (occurrence: None)
  Receive Date: 20110613
  Receipt Date: 20071128
  Transmission Date: 20111010
  Serious: Yes (Death, Hospitalization, Other)
  Sender: FDA-Public Use
  Company Number: PHHO2007VE10318

PATIENT
  Sex: Male

DRUGS (3)
  1. DIOVAN [Suspect]
     Indication: HYPERTENSION
     Dosage: 40 MG, QD
     Route: 048
  2. RADIATION [Concomitant]
  3. TRAMADOL HCL [Concomitant]

REACTIONS (2)
  - NEOPLASM MALIGNANT [None]
  - PLATELET COUNT DECREASED [None]
